FAERS Safety Report 22280457 (Version 13)
Quarter: 2024Q4

REPORT INFORMATION
  Report Type: Spontaneous
  Country: US (occurrence: US)
  Receive Date: 20230503
  Receipt Date: 20241015
  Transmission Date: 20250115
  Serious: Yes (Disabling, Other)
  Sender: AMGEN
  Company Number: US-HORIZON THERAPEUTICS-HZN-2023-003093

PATIENT
  Age: 49 Year
  Sex: Female

DRUGS (44)
  1. TEPEZZA [Suspect]
     Active Substance: TEPROTUMUMAB-TRBW
     Indication: Endocrine ophthalmopathy
     Dosage: 800 MILLIGRAM, Q3WK  (FIRST INFUSION)
     Route: 042
     Dates: start: 20210511
  2. TEPEZZA [Suspect]
     Active Substance: TEPROTUMUMAB-TRBW
     Indication: Graves^ disease
     Dosage: 1600 MILLIGRAM, Q3WK (SECOND INFUSION)
     Route: 042
     Dates: start: 20210601
  3. TEPEZZA [Suspect]
     Active Substance: TEPROTUMUMAB-TRBW
     Dosage: 1600 MILLIGRAM, Q3WK (THIRD INFUSION)
     Route: 042
     Dates: start: 20210622
  4. TEPEZZA [Suspect]
     Active Substance: TEPROTUMUMAB-TRBW
     Dosage: 1600 MILLIGRAM, Q3WK (FOURTH INFUSION)
     Route: 042
     Dates: start: 20210713
  5. TEPEZZA [Suspect]
     Active Substance: TEPROTUMUMAB-TRBW
     Dosage: 1600 MILLIGRAM, Q3WK (FIFTH INFUSION)
     Route: 042
     Dates: start: 20210803
  6. TEPEZZA [Suspect]
     Active Substance: TEPROTUMUMAB-TRBW
     Dosage: 1600 MILLIGRAM, Q3WK (SIXTH INFUSION)
     Route: 042
     Dates: start: 20210824
  7. TEPEZZA [Suspect]
     Active Substance: TEPROTUMUMAB-TRBW
     Dosage: 1600 MILLIGRAM, Q3WK (SEVENTH INFUSION)
     Route: 042
     Dates: start: 20210914
  8. TEPEZZA [Suspect]
     Active Substance: TEPROTUMUMAB-TRBW
     Dosage: 1600 MILLIGRAM, Q3WK (EIGHT INFUSION)
     Route: 042
     Dates: start: 20211005
  9. PEPCID [Concomitant]
     Active Substance: FAMOTIDINE
     Dosage: 20 MILLIGRAM
     Route: 048
  10. VOLTAREN [Concomitant]
     Active Substance: DICLOFENAC SODIUM
     Dosage: 75 MILLIGRAM, BID
     Route: 048
  11. SYNTHROID [Concomitant]
     Active Substance: LEVOTHYROXINE SODIUM
     Dosage: 100 MICROGRAM, QD
     Route: 048
  12. DECADRON [Concomitant]
     Active Substance: DEXAMETHASONE
     Dosage: 10 MILLIGRAM
     Route: 042
  13. BENADRYL [Concomitant]
     Active Substance: DIPHENHYDRAMINE HYDROCHLORIDE
     Dosage: 12.5 MILLIGRAM
     Route: 065
  14. ANCEF [Concomitant]
     Active Substance: CEFAZOLIN SODIUM
     Dosage: 1 GRAM
     Route: 065
  15. XYLOCAINE WITH EPINEPHRINE [Concomitant]
     Active Substance: EPINEPHRINE BITARTRATE\LIDOCAINE HYDROCHLORIDE
     Dosage: 20 MILLILITER
     Route: 065
  16. TYLENOL [Concomitant]
     Active Substance: ACETAMINOPHEN
     Dosage: 650 MILLIGRAM, Q6H
     Route: 048
  17. PERCOCET [Concomitant]
     Active Substance: ACETAMINOPHEN\OXYCODONE HYDROCHLORIDE
     Dosage: 325 MILLIGRAM, Q6H  (1TABLET EVERY SIX HOURS)
     Route: 048
  18. TETRACAINE HYDROCHLORIDE [Concomitant]
     Active Substance: TETRACAINE HYDROCHLORIDE
     Dosage: UNK (1 DROP)
     Route: 047
  19. TETRAVISC [Concomitant]
     Active Substance: TETRACAINE HYDROCHLORIDE
     Dosage: UNK (1 DROP)
     Route: 047
  20. POLYSPORIN [Concomitant]
     Active Substance: BACITRACIN ZINC\POLYMYXIN B SULFATE
     Dosage: UNK, Q6H
     Route: 061
  21. MARCAINE WITH EPINEPHRINE [Concomitant]
     Active Substance: BUPIVACAINE HYDROCHLORIDE\EPINEPHRINE BITARTRATE
     Dosage: 10 MILLILITER
     Route: 065
  22. LIPITOR [Concomitant]
     Active Substance: ATORVASTATIN CALCIUM
     Dosage: 40 MILLIGRAM
     Route: 048
  23. TOBRADEX [Concomitant]
     Active Substance: DEXAMETHASONE\TOBRAMYCIN
     Dosage: UNK, QID
     Route: 061
     Dates: start: 20140411
  24. NEO SYNEPHRINE [Concomitant]
     Dosage: UNK
     Route: 047
  25. Cyclobenzaprine er [Concomitant]
     Dosage: 5 MILLIGRAM, BID
     Route: 065
  26. VITAMIN D2 [Concomitant]
     Active Substance: ERGOCALCIFEROL
     Dosage: 1.25 MILLIGRAM, QWK
     Route: 065
  27. VITAMIN D2 [Concomitant]
     Active Substance: ERGOCALCIFEROL
     Dosage: UNK, QD, (ONE TABLET DAILY)
     Route: 048
     Dates: start: 20180612
  28. MACRODANTIN [Concomitant]
     Active Substance: NITROFURANTOIN
     Dosage: 100 MILLIGRAM, BID
     Route: 065
  29. LEVOTHYROXINE SODIUM [Concomitant]
     Active Substance: LEVOTHYROXINE SODIUM
     Dosage: 100 MICROGRAM, QD
     Route: 065
  30. LEVOTHYROXINE SODIUM [Concomitant]
     Active Substance: LEVOTHYROXINE SODIUM
     Dosage: 125 UNK
     Route: 048
  31. LEVOTHYROXINE SODIUM [Concomitant]
     Active Substance: LEVOTHYROXINE SODIUM
     Dosage: 150 MICROGRAM, QD
     Route: 048
  32. PROMETHAZINE [Concomitant]
     Active Substance: PROMETHAZINE HYDROCHLORIDE
     Dosage: 5 MILLIGRAM, TID
     Route: 048
  33. PROMETHAZINE [Concomitant]
     Active Substance: PROMETHAZINE HYDROCHLORIDE
     Dosage: 10 MILLILITER, QID (6.25 MG/5ML)
     Route: 048
     Dates: start: 20210811
  34. VITAMIN C [Concomitant]
     Active Substance: ASCORBIC ACID
     Dosage: 500 MILLIGRAM, BID
     Route: 065
  35. ZINC [Concomitant]
     Active Substance: ZINC
     Dosage: 50 MILLIGRAM, QD
     Route: 065
  36. ZITHROMAX [Concomitant]
     Active Substance: AZITHROMYCIN DIHYDRATE
     Dosage: 250 MILLIGRAM
     Route: 065
  37. MECLIZINE HYDROCHLORIDE [Concomitant]
     Active Substance: MECLIZINE HYDROCHLORIDE
     Dosage: 12.5 MILLIGRAM, BID
     Route: 065
  38. ZOFRAN [Concomitant]
     Active Substance: ONDANSETRON HYDROCHLORIDE
     Dosage: UNK, TID
     Route: 065
  39. DIFLUCAN [Concomitant]
     Active Substance: FLUCONAZOLE
     Dosage: 200 MILLIGRAM, QD
     Route: 065
  40. KEFLEX [Concomitant]
     Active Substance: CEPHALEXIN
     Dosage: 500 MILLIGRAM, BID
     Route: 065
  41. ULTRAM [Concomitant]
     Active Substance: TRAMADOL HYDROCHLORIDE
     Indication: Pain
     Dosage: 50 MILLIGRAM, Q8H
     Route: 048
     Dates: start: 20240313
  42. ACETAMINOPHEN [Concomitant]
     Active Substance: ACETAMINOPHEN
     Dosage: 325 MILLIGRAM
     Route: 065
     Dates: start: 20240424
  43. MAGNESIUM [Concomitant]
     Active Substance: MAGNESIUM
     Dosage: UNK
     Route: 065
     Dates: start: 20220316
  44. AMLODIPINE [Concomitant]
     Active Substance: AMLODIPINE BESYLATE
     Dosage: 5 MILLIGRAM
     Route: 048

REACTIONS (84)
  - Disability [Not Recovered/Not Resolved]
  - Physical disability [Not Recovered/Not Resolved]
  - Deafness permanent [Not Recovered/Not Resolved]
  - Headache [Unknown]
  - Fibula fracture [Unknown]
  - Chest pain [Unknown]
  - Neck pain [Unknown]
  - Essential hypertension [Unknown]
  - Palpitations [Unknown]
  - Blood pressure increased [Unknown]
  - Paralysis [Unknown]
  - Fall [Unknown]
  - Pain [Not Recovered/Not Resolved]
  - Injury [Not Recovered/Not Resolved]
  - Anxiety [Not Recovered/Not Resolved]
  - Concomitant disease aggravated [Not Recovered/Not Resolved]
  - Discomfort [Unknown]
  - Impaired quality of life [Not Recovered/Not Resolved]
  - Emotional distress [Not Recovered/Not Resolved]
  - Dry eye [Not Recovered/Not Resolved]
  - Diplopia [Not Recovered/Not Resolved]
  - Economic problem [Not Recovered/Not Resolved]
  - Product quality issue [Unknown]
  - Tinnitus [Recovered/Resolved]
  - Nausea [Not Recovered/Not Resolved]
  - Alopecia [Recovered/Resolved]
  - Constipation [Unknown]
  - Arthralgia [Unknown]
  - Abdominal pain upper [Unknown]
  - Vision blurred [Unknown]
  - Blood urine present [Unknown]
  - Protein urine present [Unknown]
  - Gastrooesophageal reflux disease [Unknown]
  - High density lipoprotein decreased [Unknown]
  - Blood cholesterol increased [Unknown]
  - Low density lipoprotein increased [Unknown]
  - Blood thyroid stimulating hormone increased [Unknown]
  - Blood folate decreased [Unknown]
  - C-reactive protein increased [Unknown]
  - Cough [Not Recovered/Not Resolved]
  - Blood calcium decreased [Unknown]
  - Monocyte count abnormal [Unknown]
  - Red cell distribution width decreased [Unknown]
  - Platelet count increased [Unknown]
  - Blood thyroid stimulating hormone decreased [Unknown]
  - Haematocrit decreased [Unknown]
  - Blood triglycerides increased [Unknown]
  - Complement factor C4 increased [Unknown]
  - Blood immunoglobulin M abnormal [Unknown]
  - Blood sodium increased [Unknown]
  - Blood creatinine decreased [Unknown]
  - Blood potassium increased [Unknown]
  - Hepatitis A virus test positive [Unknown]
  - Hepatitis B virus test positive [Unknown]
  - Punctal plug insertion [Unknown]
  - Joint swelling [Unknown]
  - Ligament sprain [Unknown]
  - Chest discomfort [Unknown]
  - Paraesthesia [Unknown]
  - Herpes virus infection [Unknown]
  - Haematuria [Unknown]
  - Obesity [Unknown]
  - Urinary tract infection [Unknown]
  - Hepatic steatosis [Unknown]
  - Vitamin D deficiency [Unknown]
  - Blood creatine increased [Unknown]
  - Hyperlipidaemia [Unknown]
  - Pyrexia [Unknown]
  - Upper respiratory tract infection [Unknown]
  - Influenza [Unknown]
  - Gastrooesophageal reflux disease [Unknown]
  - Myalgia [Unknown]
  - Arthritis [Unknown]
  - Joint stiffness [Unknown]
  - Ear discomfort [Unknown]
  - Asthenia [Unknown]
  - COVID-19 [Unknown]
  - Fatigue [Unknown]
  - Muscle spasms [Recovering/Resolving]
  - Blood glucose increased [Unknown]
  - Neutrophil percentage increased [Unknown]
  - Road traffic accident [Unknown]
  - Eye pain [Unknown]
  - Intervertebral disc degeneration [Unknown]

NARRATIVE: CASE EVENT DATE: 20210101
